FAERS Safety Report 4295009-5 (Version None)
Quarter: 2004Q1

REPORT INFORMATION
  Report Type: 
  Country: None (occurrence: None)
  Receive Date: 20040216
  Receipt Date: 20031028
  Transmission Date: 20041129
  Serious: Yes (Death)
  Sender: FDA-Public Use
  Company Number: 200321595GDDC

PATIENT
  Age: 23 Year
  Sex: Female

DRUGS (5)
  1. LANTUS [Suspect]
     Indication: DIABETES MELLITUS INSULIN-DEPENDENT
     Dosage: DOSE: UNK
     Route: 058
     Dates: start: 20021025
  2. CITALOPRAM [Concomitant]
     Indication: DEPRESSION
     Dosage: DOSE: UNK
     Route: 048
     Dates: start: 20011219
  3. OLANZAPINE [Concomitant]
     Indication: DEPRESSION
     Route: 048
     Dates: start: 20011219, end: 20030325
  4. SIMVASTATIN [Concomitant]
     Indication: HYPERCHOLESTEROLAEMIA
     Route: 048
     Dates: start: 20010717, end: 20030325
  5. VOLTAREN [Concomitant]
     Indication: SCIATICA
     Dosage: DOSE: UNK
     Route: 048
     Dates: start: 20030110, end: 20030325

REACTIONS (3)
  - COMPLICATIONS OF MATERNAL EXPOSURE TO THERAPEUTIC DRUGS [None]
  - INTRA-UTERINE DEATH [None]
  - MATERNAL DRUGS AFFECTING FOETUS [None]
